FAERS Safety Report 14247172 (Version 2)
Quarter: 2018Q1

REPORT INFORMATION
  Report Type: Report from Study
  Country: None (occurrence: US)
  Receive Date: 20171204
  Receipt Date: 20180209
  Transmission Date: 20180508
  Serious: Yes (Other)
  Sender: FDA-Public Use
  Company Number: US-ABBVIE-17K-163-2178124-00

PATIENT
  Age: 52 Year
  Sex: Female

DRUGS (1)
  1. HUMIRA [Suspect]
     Active Substance: ADALIMUMAB
     Indication: RHEUMATOID ARTHRITIS
     Route: 058

REACTIONS (12)
  - Pulmonary thrombosis [Unknown]
  - Fatigue [Unknown]
  - Fall [Unknown]
  - Insomnia [Unknown]
  - Fibromyalgia [Unknown]
  - Intervertebral disc degeneration [Not Recovered/Not Resolved]
  - Peripheral swelling [Unknown]
  - Synovial cyst [Unknown]
  - Paraesthesia [Unknown]
  - Joint injury [Unknown]
  - Limb discomfort [Not Recovered/Not Resolved]
  - Thrombosis [Unknown]

NARRATIVE: CASE EVENT DATE: 2016
